FAERS Safety Report 5977702-9 (Version None)
Quarter: 2008Q4

REPORT INFORMATION
  Report Type: 
  Country: None (occurrence: None)
  Receive Date: 20081203
  Receipt Date: 20081125
  Transmission Date: 20090506
  Serious: Yes (Death, Life-Threatening)
  Sender: FDA-Public Use
  Company Number: GB-ROCHE-595211

PATIENT
  Sex: Male

DRUGS (1)
  1. XENICAL [Suspect]
     Indication: DRUG USE FOR UNKNOWN INDICATION
     Dosage: PATIENT ONLY HAD ONE TABLET
     Route: 048
     Dates: start: 20080220, end: 20080220

REACTIONS (2)
  - INTESTINAL ISCHAEMIA [None]
  - PULMONARY EMBOLISM [None]
